FAERS Safety Report 8455308-X (Version None)
Quarter: 2012Q2

REPORT INFORMATION
  Report Type: 
  Country: None (occurrence: None)
  Receive Date: 20120621
  Receipt Date: 20120611
  Transmission Date: 20120825
  Serious: Yes (Hospitalization)
  Sender: FDA-Public Use
  Company Number: US-JNJFOC-20120305141

PATIENT
  Sex: Male
  Weight: 97.5 kg

DRUGS (5)
  1. PREDNISONE [Suspect]
     Indication: PROSTATE CANCER METASTATIC
     Route: 048
     Dates: start: 20111227
  2. DOCETAXEL [Suspect]
     Indication: PROSTATE CANCER METASTATIC
     Dosage: CYCLE 4
     Route: 042
     Dates: start: 20120228
  3. DOCETAXEL [Suspect]
     Dosage: CYCLE 1
     Route: 042
     Dates: start: 20111227
  4. ABIRATERONE ACETATE [Suspect]
     Route: 048
  5. ABIRATERONE ACETATE [Suspect]
     Indication: PROSTATE CANCER METASTATIC
     Route: 048
     Dates: start: 20120103, end: 20120311

REACTIONS (2)
  - PNEUMONITIS [None]
  - FEBRILE NEUTROPENIA [None]
